FAERS Safety Report 6829303-8 (Version None)
Quarter: 2010Q3

REPORT INFORMATION
  Report Type: 
  Country: None (occurrence: None)
  Receive Date: 20100709
  Receipt Date: 20070228
  Transmission Date: 20110219
  Serious: No
  Sender: FDA-Public Use
  Company Number: US-PFIZER INC-2007016478

PATIENT
  Sex: Female
  Weight: 64.86 kg

DRUGS (14)
  1. CHANTIX [Suspect]
     Indication: SMOKING CESSATION THERAPY
     Route: 048
     Dates: start: 20070101
  2. ACETYLSALICYLIC ACID [Concomitant]
  3. DETROL [Concomitant]
  4. DILTIAZEM [Concomitant]
  5. VALSARTAN [Concomitant]
  6. FUROSEMIDE [Concomitant]
  7. LANOXIN [Concomitant]
  8. METHOCARBAMOL [Concomitant]
  9. NEXIUM [Concomitant]
  10. NITROGLYCERIN [Concomitant]
     Route: 062
  11. LIPITOR [Concomitant]
  12. TRAZODONE [Concomitant]
  13. INSULIN [Concomitant]
     Indication: DIABETES MELLITUS
  14. TRICOR [Concomitant]

REACTIONS (1)
  - CONSTIPATION [None]
